FAERS Safety Report 24083773 (Version 1)
Quarter: 2024Q3

REPORT INFORMATION
  Report Type: Report from Study
  Country: IN (occurrence: IN)
  Receive Date: 20240712
  Receipt Date: 20240712
  Transmission Date: 20241017
  Serious: Yes (Other)
  Sender: ROCHE
  Company Number: IN-ROCHE-3441157

PATIENT
  Age: 44 Year
  Sex: Female

DRUGS (1)
  1. PERJETA [Suspect]
     Active Substance: PERTUZUMAB
     Indication: Breast cancer metastatic
     Route: 042

REACTIONS (4)
  - Off label use [Unknown]
  - Nasopharyngitis [Unknown]
  - Hip fracture [Unknown]
  - Injury [Unknown]

NARRATIVE: CASE EVENT DATE: 20240619
